FAERS Safety Report 4915761-2 (Version None)
Quarter: 2006Q1

REPORT INFORMATION
  Report Type: 
  Country: None (occurrence: None)
  Receive Date: 20060214
  Receipt Date: 20060130
  Transmission Date: 20060701
  Serious: Yes (Other)
  Sender: FDA-Public Use
  Company Number: US200601005030

PATIENT
  Sex: Male

DRUGS (1)
  1. XIGRIS(DROTRECOGIN ALFA (ACTIVATED)) VIAL [Suspect]
     Indication: BACTERIAL INFECTION
     Dosage: INTRAVENOUS
     Route: 042
     Dates: start: 20060127, end: 20060128

REACTIONS (1)
  - PLATELET COUNT DECREASED [None]
